FAERS Safety Report 16934037 (Version 1)
Quarter: 2019Q4

REPORT INFORMATION
  Report Type: Spontaneous
  Country: US (occurrence: US)
  Receive Date: 20190827
  Receipt Date: 20190827
  Transmission Date: 20200122
  Serious: Yes (Hospitalization)
  Sender: FDA-Public Use
  Company Number: None

PATIENT
  Age: 3 Month
  Sex: Male

DRUGS (1)
  1. SILDENAFIL 10MG [Suspect]
     Active Substance: SILDENAFIL
     Indication: COR PULMONALE
     Dosage: ?          OTHER DOSE:.5 ML;?
     Route: 048

REACTIONS (1)
  - Cardiac operation [None]

NARRATIVE: CASE EVENT DATE: 20190717
